FAERS Safety Report 4384875-0 (Version None)
Quarter: 2004Q2

REPORT INFORMATION
  Report Type: 
  Country: None (occurrence: None)
  Receive Date: 20040621
  Receipt Date: 20040607
  Transmission Date: 20050107
  Serious: Yes (Hospitalization)
  Sender: FDA-Public Use
  Company Number: USA-2004-0015582

PATIENT
  Age: 47 Year
  Sex: Male

DRUGS (4)
  1. HYDROMORPHONE HCL [Suspect]
     Indication: PAIN
     Dosage: 12.5 MG/ML,  INTRATHECAL
     Route: 037
  2. MORPHINE SULFATE [Suspect]
     Indication: PAIN
     Dosage: 8 MG, INTRATHECAL
     Route: 037
     Dates: start: 20020501
  3. CLONIDINE [Suspect]
     Indication: PAIN
     Dosage: SEE IMAGE
     Route: 037
     Dates: start: 20010101
  4. CLONIDINE [Suspect]
     Indication: PAIN
     Dosage: SEE IMAGE
     Route: 037
     Dates: start: 20020501

REACTIONS (4)
  - INFLAMMATION [None]
  - INJURY [None]
  - MASS [None]
  - SPINAL CORD COMPRESSION [None]
